FAERS Safety Report 6287640-2 (Version None)
Quarter: 2009Q3

REPORT INFORMATION
  Report Type: 
  Country: None (occurrence: None)
  Receive Date: 20090727
  Receipt Date: 20090727
  Transmission Date: 20100115
  Serious: No
  Sender: FDA-Public Use
  Company Number: None

PATIENT
  Age: 45 Year
  Sex: Female

DRUGS (12)
  1. ULTRAM [Suspect]
     Dosage: 50MG QID
     Dates: start: 20071113
  2. IBUPROFEN [Concomitant]
  3. DESFLURANE [Concomitant]
  4. PROPOFOL [Concomitant]
  5. FENTANYL [Concomitant]
  6. VERSED [Concomitant]
  7. ANCEF [Concomitant]
  8. ZOFRAN [Concomitant]
  9. TORADOL [Concomitant]
  10. DECADRON [Concomitant]
  11. LABETALOL HCL [Concomitant]
  12. PERCOCET [Concomitant]

REACTIONS (18)
  - BACK PAIN [None]
  - CHILLS [None]
  - DECREASED ACTIVITY [None]
  - DECREASED APPETITE [None]
  - DIARRHOEA [None]
  - FATIGUE [None]
  - FEELING ABNORMAL [None]
  - HEPATOTOXICITY [None]
  - MALAISE [None]
  - MIXED LIVER INJURY [None]
  - MUSCULOSKELETAL PAIN [None]
  - MYALGIA [None]
  - NECK PAIN [None]
  - POLLAKIURIA [None]
  - PRURITUS [None]
  - PYREXIA [None]
  - RASH [None]
  - WEIGHT DECREASED [None]
